FAERS Safety Report 5009524-X (Version None)
Quarter: 2006Q2

REPORT INFORMATION
  Report Type: 
  Country: None (occurrence: None)
  Receive Date: 20060524
  Receipt Date: 20060421
  Transmission Date: 20061013
  Serious: Yes (Hospitalization)
  Sender: FDA-Public Use
  Company Number: PHNU2006DE01734

PATIENT
  Age: 79 Year
  Sex: Male
  Weight: 80 kg

DRUGS (3)
  1. DIMENHYDRINATE [Concomitant]
  2. ANALGESICS [Concomitant]
  3. VOLTAREN [Suspect]
     Indication: SCIATICA
     Dosage: 3INJECTIONS OVER 3 DAYS
     Route: 030
     Dates: start: 20060405, end: 20060408

REACTIONS (4)
  - ARTIFICIAL ANUS [None]
  - DIALYSIS [None]
  - ILEUS [None]
  - RENAL FAILURE ACUTE [None]
